FAERS Safety Report 7412552-8 (Version None)
Quarter: 2011Q2

REPORT INFORMATION
  Report Type: 
  Country: None (occurrence: None)
  Receive Date: 20110413
  Receipt Date: 20110405
  Transmission Date: 20111010
  Serious: Yes (Hospitalization)
  Sender: FDA-Public Use
  Company Number: GB-ELI_LILLY_AND_COMPANY-GB201103005400

PATIENT
  Sex: Male
  Weight: 68 kg

DRUGS (4)
  1. FOLIC ACID [Concomitant]
     Indication: PROPHYLAXIS
     Dosage: 400 UG, QD
     Route: 048
     Dates: start: 20110224
  2. CISPLATIN [Suspect]
     Indication: NON-SMALL CELL LUNG CANCER
     Dosage: 75 MG/M2, CYCLICALLY
     Route: 042
     Dates: start: 20110303, end: 20110303
  3. PEMETREXED [Suspect]
     Indication: NON-SMALL CELL LUNG CANCER
     Dosage: 500 MG/M2, CYCLICALLY
     Route: 042
     Dates: start: 20110303, end: 20110303
  4. HYDROXOCOBALAMIN [Concomitant]
     Indication: PROPHYLAXIS
     Dosage: 1000 UG, EVERY 9 WEEKS
     Route: 030
     Dates: start: 20110224

REACTIONS (1)
  - HYPONATRAEMIA [None]
